FAERS Safety Report 20076799 (Version 1)
Quarter: 2021Q4

REPORT INFORMATION
  Report Type: Spontaneous
  Country: US (occurrence: None)
  Receive Date: 20211116
  Receipt Date: 20211116
  Transmission Date: 20220303
  Serious: No
  Sender: FDA-Public Use
  Company Number: 2021A795788

PATIENT
  Age: 25529 Day
  Sex: Female
  Weight: 53.1 kg

DRUGS (1)
  1. BUDESONIDE\FORMOTEROL\GLYCOPYRRONIUM [Suspect]
     Active Substance: BUDESONIDE\FORMOTEROL\GLYCOPYRRONIUM
     Indication: Chronic obstructive pulmonary disease
     Dosage: 160/9/4.8 MCG TWO INHALATIONS, TWICE DAILY
     Route: 055
     Dates: start: 2021

REACTIONS (4)
  - Dyspnoea [Unknown]
  - Intentional device misuse [Not Recovered/Not Resolved]
  - Product taste abnormal [Unknown]
  - Device delivery system issue [Unknown]

NARRATIVE: CASE EVENT DATE: 20211031
